FAERS Safety Report 9775769 (Version 1)
Quarter: 2013Q4

REPORT INFORMATION
  Report Type: Spontaneous
  Country: FR (occurrence: None)
  Receive Date: 20131218
  Receipt Date: 20131218
  Transmission Date: 20140711
  Serious: Yes (Death, Hospitalization)
  Sender: FDA-Public Use
  Company Number: 7257105

PATIENT
  Age: 70 Year
  Sex: Male

DRUGS (5)
  1. LEVOTHYROXINE (LEVOTHYROXINE) (LEVOTHYROXINE SODIUM) [Suspect]
     Indication: PRODUCT USED FOR UNKNOWN INDICATION
  2. VINFLUNINE [Suspect]
     Indication: METASTATIC CARCINOMA OF THE BLADDER
  3. CARBIMAZOLE [Concomitant]
  4. METOCLOPRAMIDE [Concomitant]
  5. ALIMEMAZINE [Concomitant]

REACTIONS (5)
  - Neutropenia [None]
  - Inappropriate antidiuretic hormone secretion [None]
  - Anaemia [None]
  - Blood osmolarity decreased [None]
  - Dry skin [None]
